FAERS Safety Report 7356682-8 (Version None)
Quarter: 2011Q1

REPORT INFORMATION
  Report Type: 
  Country: None (occurrence: None)
  Receive Date: 20110316
  Receipt Date: 20110311
  Transmission Date: 20110831
  Serious: Yes (Death, Life-Threatening, Hospitalization)
  Sender: FDA-Public Use
  Company Number: PHHY2010US35413

PATIENT
  Sex: Female

DRUGS (2)
  1. EXJADE [Suspect]
     Dosage: 1000 MG, QD
     Route: 048
  2. BLOOD TRANSFUSION [Concomitant]

REACTIONS (6)
  - CHRONIC LYMPHOCYTIC LEUKAEMIA [None]
  - MALAISE [None]
  - HAEMOLYSIS [None]
  - NONSPECIFIC REACTION [None]
  - DECREASED APPETITE [None]
  - DIARRHOEA [None]
